FAERS Safety Report 8045848-X (Version None)
Quarter: 2012Q1

REPORT INFORMATION
  Report Type: 
  Country: None (occurrence: None)
  Receive Date: 20120112
  Receipt Date: 20120112
  Transmission Date: 20120608
  Serious: Yes (Hospitalization)
  Sender: FDA-Public Use
  Company Number: None

PATIENT
  Sex: Male
  Weight: 115.4 kg

DRUGS (11)
  1. CARBOPLATIN [Suspect]
     Dosage: 900 MG
  2. ONDANSETRON [Concomitant]
  3. SIMVASTATIN [Concomitant]
  4. CYANOCOBALAMIN [Concomitant]
  5. TAXOL [Suspect]
     Dosage: 468 MG
  6. FOLIC ACID [Concomitant]
  7. THIAMINE HCL [Concomitant]
  8. DOCUSATE SODIUM [Concomitant]
  9. LISINOPRIL [Concomitant]
  10. HYDROCHLOROTHIAZIDE [Concomitant]
  11. ALLOPURINOL [Concomitant]

REACTIONS (10)
  - DIARRHOEA [None]
  - DIZZINESS [None]
  - HYPOAESTHESIA [None]
  - NAUSEA [None]
  - BLOOD PRESSURE ORTHOSTATIC [None]
  - FATIGUE [None]
  - VOMITING [None]
  - DECREASED APPETITE [None]
  - PAIN IN EXTREMITY [None]
  - BLOOD SODIUM DECREASED [None]
